FAERS Safety Report 4902097-9 (Version None)
Quarter: 2006Q1

REPORT INFORMATION
  Report Type: 
  Country: None (occurrence: None)
  Receive Date: 20060206
  Receipt Date: 20051222
  Transmission Date: 20060701
  Serious: Yes (Hospitalization)
  Sender: FDA-Public Use
  Company Number: US-AMGEN-US162890

PATIENT
  Age: 59 Year
  Sex: Female
  Weight: 89.9 kg

DRUGS (3)
  1. PROCRIT [Suspect]
     Indication: RENAL FAILURE CHRONIC
     Route: 058
     Dates: start: 20050328, end: 20051219
  2. LINEZOLID [Concomitant]
     Dates: start: 20051122, end: 20051221
  3. COTRIM [Concomitant]
     Dates: start: 20051124, end: 20051205

REACTIONS (2)
  - DIABETIC FOOT [None]
  - THERAPEUTIC RESPONSE DECREASED [None]
